FAERS Safety Report 9106612 (Version 1)
Quarter: 2013Q1

REPORT INFORMATION
  Report Type: Report from Study
  Country: BR (occurrence: BR)
  Receive Date: 20130221
  Receipt Date: 20130221
  Transmission Date: 20140127
  Serious: Yes (Hospitalization)
  Sender: FDA-Public Use
  Company Number: BR-SANOFI-AVENTIS-2013SA015210

PATIENT
  Age: 55 Year
  Sex: Male
  Weight: 180 kg

DRUGS (18)
  1. LANTUS [Suspect]
     Indication: DIABETES MELLITUS
     Route: 058
     Dates: start: 201212, end: 20130214
  2. LANTUS [Suspect]
     Indication: DIABETES MELLITUS
     Route: 058
     Dates: start: 20130215
  3. CLIKSTAR [Concomitant]
     Dates: start: 201212
  4. METFORMIN [Concomitant]
     Indication: DIABETES MELLITUS
     Route: 048
  5. AAS [Concomitant]
     Indication: ANTIPLATELET THERAPY
     Dosage: 1 TABLET AFTER LUNCH
     Route: 048
  6. SIMVASTATIN [Concomitant]
     Indication: BLOOD CHOLESTEROL
     Dosage: START: ABOUT 8 YEARS AGO
     Route: 048
  7. CAPTOPRIL [Concomitant]
     Indication: HYPERTENSION
     Dosage: START: ABOUT 8 YEARS AGO
     Route: 048
  8. ATENOLOL [Concomitant]
     Indication: HYPERTENSION
     Dosage: START: ABOUT 8 YEARS AGO?FREQUENCY: 1 TABLET EVERY MORNING
     Route: 048
  9. ISCOVER [Concomitant]
     Indication: CARDIAC DISORDER
     Dosage: START: ABOUT 8 MONTHS AGO?FREQUENCY: EVERY MORNING
     Route: 048
  10. CARBAMAZEPINE [Concomitant]
     Indication: CEREBROVASCULAR ACCIDENT
     Dosage: START: ABOUT 1 YEAR AGO
     Route: 048
  11. PHENOBARBITAL [Concomitant]
     Indication: CEREBROVASCULAR ACCIDENT
     Dosage: START: 1 YEAR BACK
     Route: 048
  12. RIVOTRIL [Concomitant]
     Indication: ILL-DEFINED DISORDER
     Dosage: START: 1 YEAR BACK
     Route: 048
  13. AMITRIPTYLINE [Concomitant]
     Indication: PARKINSON^S DISEASE
     Route: 048
  14. AMITRIPTYLINE [Concomitant]
     Indication: CEREBROVASCULAR ACCIDENT
     Route: 048
  15. PROLOPA [Concomitant]
     Indication: PARKINSON^S DISEASE
     Dosage: DOSE AND FREQUENCY: 0.5 TABLETS BEFORE MEALS?START: ABOUT 1 YEAR AGO
     Route: 048
  16. MEMANTINE [Concomitant]
     Indication: PARKINSON^S DISEASE
     Dosage: START: ABOUT 1 YEAR AGO
     Route: 048
  17. LYRICA [Concomitant]
     Indication: PARKINSON^S DISEASE
     Dosage: START: ABOUT 1 YEAR AGO?FREQUENCY: EVERY MORNING
     Route: 048
  18. SIFROL [Concomitant]
     Indication: PARKINSON^S DISEASE
     Dosage: START: ABOUT 1 YEAR AGO
     Route: 048

REACTIONS (2)
  - Urinary incontinence [Not Recovered/Not Resolved]
  - Hyperglycaemia [Not Recovered/Not Resolved]
